FAERS Safety Report 16893800 (Version 2)
Quarter: 2019Q4

REPORT INFORMATION
  Report Type: Spontaneous
  Country: ES (occurrence: ES)
  Receive Date: 20191008
  Receipt Date: 20191112
  Transmission Date: 20200122
  Serious: Yes (Hospitalization, Other)
  Sender: FDA-Public Use
  Company Number: ES-PFIZER INC-2019429456

PATIENT
  Sex: Male

DRUGS (1)
  1. PRISTIQ EXTENDED-RELEASE [Suspect]
     Active Substance: DESVENLAFAXINE SUCCINATE
     Dosage: UNK

REACTIONS (2)
  - Hypertensive hydrocephalus [Unknown]
  - Toxic skin eruption [Unknown]
